FAERS Safety Report 5491927-0 (Version None)
Quarter: 2007Q4

REPORT INFORMATION
  Report Type: 
  Country: None (occurrence: None)
  Receive Date: 20071018
  Receipt Date: 20071018
  Transmission Date: 20080405
  Serious: Yes (Hospitalization)
  Sender: FDA-Public Use
  Company Number: None

PATIENT
  Age: 76 Year
  Sex: Female
  Weight: 61 kg

DRUGS (1)
  1. AVASTIN [Suspect]
     Indication: MACULAR DEGENERATION
     Dosage: INTRAOCULAR  (DURATION: ONE TIME ONLY)
     Route: 031
     Dates: start: 20071003, end: 20071003

REACTIONS (12)
  - BALANCE DISORDER [None]
  - CEREBROVASCULAR ACCIDENT [None]
  - CLAUSTROPHOBIA [None]
  - CLUMSINESS [None]
  - DIZZINESS [None]
  - GLOBAL AMNESIA [None]
  - MACULAR DEGENERATION [None]
  - MEMORY IMPAIRMENT [None]
  - RESPIRATORY RATE INCREASED [None]
  - REVERSIBLE POSTERIOR LEUKOENCEPHALOPATHY SYNDROME [None]
  - SPEECH DISORDER [None]
  - TREMOR [None]
